FAERS Safety Report 14880769 (Version 1)
Quarter: 2018Q2

REPORT INFORMATION
  Report Type: Report from Study
  Country: JP (occurrence: JP)
  Receive Date: 20180511
  Receipt Date: 20180511
  Transmission Date: 20180711
  Serious: Yes (Life-Threatening, Hospitalization, Other)
  Sender: FDA-Public Use
  Company Number: JP-GLAXOSMITHKLINE-A200602871

PATIENT
  Age: 49 Year
  Sex: Male

DRUGS (10)
  1. ZERIT [Suspect]
     Active Substance: STAVUDINE
     Indication: HIV INFECTION
     Dosage: 80 MG, QD
     Route: 048
     Dates: start: 20010906, end: 20040704
  2. MONILAC [Concomitant]
     Active Substance: LACTULOSE
     Indication: HYPERAMMONAEMIA
     Dosage: 10 ML, TID
     Route: 048
     Dates: start: 20040401, end: 20050424
  3. HISHIPHAGEN-C [Concomitant]
     Indication: CHRONIC HEPATITIS
     Dosage: 60 ML, UNK
     Dates: start: 20050401
  4. STOCRIN [Suspect]
     Active Substance: EFAVIRENZ
     Indication: HIV INFECTION
     Dosage: 400 MG, QD
     Route: 048
     Dates: start: 20050411
  5. RECOMBINATE [Concomitant]
     Active Substance: ANTIHEMOPHILIC FACTOR, HUMAN RECOMBINANT
     Dosage: 1000 IU, WE
     Route: 042
     Dates: start: 20040401
  6. VIREAD [Suspect]
     Active Substance: TENOFOVIR DISOPROXIL FUMARATE
     Indication: HIV INFECTION
     Dosage: 300 MG, QD
     Route: 048
     Dates: start: 20050307
  7. VIDEX EC [Suspect]
     Active Substance: DIDANOSINE
     Indication: HIV INFECTION
     Dosage: 250 MG, QD
     Route: 048
     Dates: start: 20010906, end: 20050201
  8. ZERIT [Suspect]
     Active Substance: STAVUDINE
     Dosage: 60 MG, QD
     Route: 048
     Dates: start: 20040705, end: 20050201
  9. LAMIVUDINE. [Suspect]
     Active Substance: LAMIVUDINE
     Indication: HIV INFECTION
     Dosage: 150 MG, BID
     Route: 048
     Dates: start: 20050307
  10. VIRACEPT [Suspect]
     Active Substance: NELFINAVIR MESYLATE
     Indication: HIV INFECTION
     Dosage: 2250 MG, QD
     Route: 048
     Dates: start: 20010906, end: 20041206

REACTIONS (4)
  - Compression fracture [Recovered/Resolved]
  - Cerebellar haemorrhage [Recovered/Resolved]
  - Osteoporotic fracture [Recovering/Resolving]
  - Hypertension [Recovering/Resolving]

NARRATIVE: CASE EVENT DATE: 20050117
